FAERS Safety Report 6754330-9 (Version None)
Quarter: 2010Q2

REPORT INFORMATION
  Report Type: 
  Country: None (occurrence: None)
  Receive Date: 20100603
  Receipt Date: 20100528
  Transmission Date: 20101027
  Serious: Yes (Death, Hospitalization)
  Sender: FDA-Public Use
  Company Number: GB-TEVA-155855ISR

PATIENT
  Age: 68 Year
  Sex: Female
  Weight: 64 kg

DRUGS (2)
  1. MIRTAZAPINE [Suspect]
     Indication: DEPRESSION
     Route: 048
     Dates: start: 20051207
  2. DULOXETINE HYDROCHLORIDE [Suspect]
     Route: 048
     Dates: start: 20070118

REACTIONS (1)
  - SUBARACHNOID HAEMORRHAGE [None]
